FAERS Safety Report 10548829 (Version 1)
Quarter: 2014Q4

REPORT INFORMATION
  Report Type: Spontaneous
  Country: ZA (occurrence: ZA)
  Receive Date: 20141028
  Receipt Date: 20141028
  Transmission Date: 20150529
  Serious: No
  Sender: FDA-Public Use
  Company Number: ZA-LUNDBECK-DKLU1104565

PATIENT
  Sex: Female

DRUGS (1)
  1. URBANOL [Suspect]
     Active Substance: CLOBAZAM
     Indication: ANXIETY
     Route: 048

REACTIONS (1)
  - Abnormal behaviour [Recovered/Resolved]
